FAERS Safety Report 7427385-6 (Version None)
Quarter: 2011Q2

REPORT INFORMATION
  Report Type: 
  Country: None (occurrence: None)
  Receive Date: 20110420
  Receipt Date: 20110412
  Transmission Date: 20111010
  Serious: Yes (Death, Other)
  Sender: FDA-Public Use
  Company Number: FR-CEPHALON-2011001384

PATIENT
  Sex: Female

DRUGS (6)
  1. EFFEXOR [Concomitant]
     Dates: end: 20110401
  2. NEXIUM [Concomitant]
  3. SOTALOL HCL [Concomitant]
     Dates: end: 20110401
  4. PLAVIX [Concomitant]
  5. TERCIAN [Concomitant]
     Dates: end: 20110401
  6. ACTIQ [Suspect]
     Indication: PAIN
     Route: 002
     Dates: start: 20110323, end: 20110401

REACTIONS (2)
  - PRE-EXISTING DISEASE [None]
  - DRUG PRESCRIBING ERROR [None]
